FAERS Safety Report 15772445 (Version 2)
Quarter: 2019Q1

REPORT INFORMATION
  Report Type: Spontaneous
  Country: JP (occurrence: JP)
  Receive Date: 20181228
  Receipt Date: 20190107
  Transmission Date: 20190417
  Serious: Yes (Hospitalization)
  Sender: FDA-Public Use
  Company Number: JP-FERRINGPH-2018FE07493

PATIENT

DRUGS (13)
  1. CORTRIL [Concomitant]
     Active Substance: HYDROCORTISONE
     Dosage: 15 MG, 1 TIME DAILY
  2. QUETIAPINE                         /01270902/ [Concomitant]
     Active Substance: QUETIAPINE FUMARATE
     Dosage: 15 MG, 2 TIMES DAILY
  3. DESMOPRESSIN KYOWA [Suspect]
     Active Substance: DESMOPRESSIN
     Indication: DIABETES INSIPIDUS
     Dosage: UNK
     Route: 045
     Dates: end: 20181211
  4. RISPERDAL [Concomitant]
     Active Substance: RISPERIDONE
     Dosage: 0.5 MG, 1 TIME DAILY
  5. THYRADIN S [Concomitant]
     Active Substance: LEVOTHYROXINE SODIUM
     Dosage: 75 ?G, 1 TIME DAILY
  6. LANSOPRAZOLE ABBOTT [Concomitant]
     Dosage: 15 MG, 1 TIME DAILY
  7. MEILAX [Concomitant]
     Active Substance: ETHYL LOFLAZEPATE
     Dosage: 0.5 MG, 1 TIME DAILY
  8. MINIRINMELT [Suspect]
     Active Substance: DESMOPRESSIN ACETATE
     Indication: DIABETES INSIPIDUS
     Dosage: 90 ?G,AT THE BEDTIME
     Route: 048
     Dates: start: 20181211
  9. SENNOSIDE                          /00571901/ [Concomitant]
     Active Substance: SENNOSIDES A AND B
     Dosage: 24 MG, 1 TIME DAILY
  10. EBRANTIL                           /00631801/ [Concomitant]
     Active Substance: URAPIDIL
     Dosage: 15 MG, 2 TIMES DAILY
  11. GLUCONSAN K KAYAKU [Concomitant]
  12. MAGMITT [Concomitant]
     Active Substance: MAGNESIUM OXIDE
     Dosage: 1500 MG, DAILY
  13. BETANIS [Concomitant]
     Active Substance: MIRABEGRON
     Dosage: 50 MG, 1 TIME DAILY

REACTIONS (4)
  - Micturition disorder [Unknown]
  - Therapeutic response decreased [Unknown]
  - Blood sodium abnormal [Unknown]
  - Wrong technique in product usage process [Not Recovered/Not Resolved]
